FAERS Safety Report 8818003 (Version 1)
Quarter: 2012Q4

REPORT INFORMATION
  Report Type: 
  Country: US (occurrence: US)
  Receive Date: 20121001
  Receipt Date: 20121001
  Transmission Date: 20130627
  Serious: No
  Sender: FDA-Public Use
  Company Number: US-B.I. PHARMACEUTICALS,INC./RIDGEFIELD-2012-BP-23522BP

PATIENT
  Age: 90 None
  Sex: Female
  Weight: 107 kg

DRUGS (7)
  1. PRADAXA [Suspect]
     Indication: PROPHYLAXIS
     Dosage: 300 mg
     Route: 048
     Dates: start: 201202
  2. PERCOGESIC [Concomitant]
     Indication: BACK PAIN
     Route: 048
  3. DIGOXIN [Concomitant]
     Indication: CARDIAC DISORDER
     Dosage: 0.25 mg
     Route: 048
     Dates: start: 201202
  4. TIZANIDINE [Concomitant]
     Indication: BACK PAIN
     Route: 048
     Dates: start: 201208
  5. PRENISONE [Concomitant]
     Indication: BLOOD CORTISOL ABNORMAL
     Dosage: 7 mg
     Route: 048
     Dates: start: 1981
  6. LEVOTHYROXINE [Concomitant]
     Indication: THYROID DISORDER
     Dosage: 5 mg
     Route: 048
     Dates: start: 1981
  7. OMEPRAZOLE [Concomitant]
     Indication: GASTROOESOPHAGEAL REFLUX DISEASE
     Dosage: 40 mg
     Route: 048
     Dates: start: 201208

REACTIONS (3)
  - Vaginal haemorrhage [Not Recovered/Not Resolved]
  - Weight decreased [Not Recovered/Not Resolved]
  - Dental caries [Recovered/Resolved]
